FAERS Safety Report 15713657 (Version 1)
Quarter: 2018Q4

REPORT INFORMATION
  Report Type: Spontaneous
  Country: US (occurrence: US)
  Receive Date: 20181128
  Receipt Date: 20181128
  Transmission Date: 20190205
  Serious: No
  Sender: FDA-Public Use
  Company Number: None

PATIENT
  Age: 12 Year
  Sex: Female

DRUGS (1)
  1. PENNEEDLE UF MINI 31GX5MM (DEVICE) [Suspect]
     Active Substance: DEVICE
     Route: 058

REACTIONS (2)
  - Product dose omission [None]
  - Product storage error [None]

NARRATIVE: CASE EVENT DATE: 20181126
